FAERS Safety Report 21044855 (Version 2)
Quarter: 2022Q3

REPORT INFORMATION
  Report Type: Report from Study
  Country: FR (occurrence: FR)
  Receive Date: 20220705
  Receipt Date: 20220730
  Transmission Date: 20221027
  Serious: Yes (Disabling)
  Sender: FDA-Public Use
  Company Number: FR-SHIRE-FR201840978

PATIENT
  Age: 44 Year
  Sex: Male
  Weight: 78 kg

DRUGS (20)
  1. TEDUGLUTIDE [Suspect]
     Active Substance: TEDUGLUTIDE
     Indication: Short-bowel syndrome
     Dosage: 4.55 MILLIGRAM, QD
     Route: 042
     Dates: start: 20180219, end: 20180302
  2. TEDUGLUTIDE [Suspect]
     Active Substance: TEDUGLUTIDE
     Indication: Short-bowel syndrome
     Dosage: 4.55 MILLIGRAM, QD
     Route: 042
     Dates: start: 20180219, end: 20180302
  3. TEDUGLUTIDE [Suspect]
     Active Substance: TEDUGLUTIDE
     Indication: Short-bowel syndrome
     Dosage: 4.55 MILLIGRAM, QD
     Route: 042
     Dates: start: 20180219, end: 20180302
  4. TEDUGLUTIDE [Suspect]
     Active Substance: TEDUGLUTIDE
     Indication: Short-bowel syndrome
     Dosage: 4.55 MILLIGRAM, QD
     Route: 042
     Dates: start: 20180219, end: 20180302
  5. TEDUGLUTIDE [Suspect]
     Active Substance: TEDUGLUTIDE
     Dosage: 1 MILLIGRAM, QD
     Route: 042
     Dates: start: 20210518, end: 202105
  6. TEDUGLUTIDE [Suspect]
     Active Substance: TEDUGLUTIDE
     Dosage: 1 MILLIGRAM, QD
     Route: 042
     Dates: start: 20210518, end: 202105
  7. TEDUGLUTIDE [Suspect]
     Active Substance: TEDUGLUTIDE
     Dosage: 1 MILLIGRAM, QD
     Route: 042
     Dates: start: 20210518, end: 202105
  8. TEDUGLUTIDE [Suspect]
     Active Substance: TEDUGLUTIDE
     Dosage: 1 MILLIGRAM, QD
     Route: 042
     Dates: start: 20210518, end: 202105
  9. TEDUGLUTIDE [Suspect]
     Active Substance: TEDUGLUTIDE
     Dosage: 1 MILLIGRAM, QD
     Route: 042
     Dates: start: 20220120, end: 20220210
  10. TEDUGLUTIDE [Suspect]
     Active Substance: TEDUGLUTIDE
     Dosage: 1 MILLIGRAM, QD
     Route: 042
     Dates: start: 20220120, end: 20220210
  11. TEDUGLUTIDE [Suspect]
     Active Substance: TEDUGLUTIDE
     Dosage: 1 MILLIGRAM, QD
     Route: 042
     Dates: start: 20220120, end: 20220210
  12. TEDUGLUTIDE [Suspect]
     Active Substance: TEDUGLUTIDE
     Dosage: 1 MILLIGRAM, QD
     Route: 042
     Dates: start: 20220120, end: 20220210
  13. INNOHEP [Concomitant]
     Active Substance: TINZAPARIN SODIUM
     Indication: Thrombosis prophylaxis
  14. AUGMENTIN [Concomitant]
     Active Substance: AMOXICILLIN\CLAVULANATE POTASSIUM
     Indication: Infection prophylaxis
  15. HUMIRA [Concomitant]
     Active Substance: ADALIMUMAB
     Indication: Crohn^s disease
  16. CODEINE [Concomitant]
     Active Substance: CODEINE
     Indication: Prophylaxis
  17. RIFAMPIN [Concomitant]
     Active Substance: RIFAMPIN
     Indication: Vascular device infection
     Dosage: 300 MILLIGRAM, TID
     Route: 048
     Dates: start: 20210829, end: 20210904
  18. OFLOXACIN [Concomitant]
     Active Substance: OFLOXACIN
     Indication: Vascular device infection
     Dosage: 200 MILLIGRAM, TID
     Route: 042
     Dates: start: 20210828, end: 20210904
  19. FUSIDIC ACID [Concomitant]
     Active Substance: FUSIDIC ACID
     Indication: Antibiotic therapy
     Dosage: 1 DOSAGE FORM
     Route: 061
  20. ECONAZOLE [Concomitant]
     Active Substance: ECONAZOLE
     Indication: Psoriasis
     Dosage: 1 DOSAGE FORM
     Route: 061
     Dates: start: 201901

REACTIONS (3)
  - Stenosis [Recovered/Resolved]
  - Oliguria [Recovered/Resolved]
  - Abdominal pain [Recovered/Resolved]

NARRATIVE: CASE EVENT DATE: 20180219
